FAERS Safety Report 8536803-1 (Version None)
Quarter: 2012Q3

REPORT INFORMATION
  Report Type: 
  Country: None (occurrence: None)
  Receive Date: 20120725
  Receipt Date: 20120720
  Transmission Date: 20120928
  Serious: Yes (Death)
  Sender: FDA-Public Use
  Company Number: US-SHIRE-ALL1-2012-03530

PATIENT
  Sex: Male

DRUGS (1)
  1. VPRIV [Suspect]
     Indication: GAUCHER'S DISEASE
     Dosage: 4800 IU, 1X/2WKS (12 VIALS)
     Route: 041
     Dates: start: 20100602

REACTIONS (1)
  - ROAD TRAFFIC ACCIDENT [None]
